FAERS Safety Report 4774875-0 (Version None)
Quarter: 2005Q3

REPORT INFORMATION
  Report Type: 
  Country: None (occurrence: None)
  Receive Date: 20050919
  Receipt Date: 20050907
  Transmission Date: 20060218
  Serious: Yes (Hospitalization, Other)
  Sender: FDA-Public Use
  Company Number: 2005125822

PATIENT
  Sex: Male

DRUGS (2)
  1. BEXTRA [Suspect]
     Indication: ILL-DEFINED DISORDER
  2. VIOXX [Suspect]
     Indication: ILL-DEFINED DISORDER

REACTIONS (9)
  - ANGIOPATHY [None]
  - CARDIOMYOPATHY [None]
  - CEREBROVASCULAR ACCIDENT [None]
  - CONDITION AGGRAVATED [None]
  - EJECTION FRACTION DECREASED [None]
  - FINGER AMPUTATION [None]
  - MYOCARDIAL INFARCTION [None]
  - SKIN ULCER [None]
  - THROMBOSIS [None]
